FAERS Safety Report 4471063-2 (Version None)
Quarter: 2004Q4

REPORT INFORMATION
  Report Type: 
  Country: None (occurrence: None)
  Receive Date: 20041011
  Receipt Date: 20040930
  Transmission Date: 20050328
  Serious: Yes (Other)
  Sender: FDA-Public Use
  Company Number: GB-JNJFOC-20040902843

PATIENT
  Sex: Male

DRUGS (4)
  1. REMICADE [Suspect]
     Indication: RHEUMATOID ARTHRITIS
     Dosage: 15 INFUSIONS
     Route: 042
  2. METHOTREXATE [Concomitant]
  3. PREDNISOLONE [Concomitant]
  4. CALCICHEW D3 FORTE [Concomitant]

REACTIONS (8)
  - BACK PAIN [None]
  - DYSPNOEA [None]
  - HEADACHE [None]
  - HYPERTENSION [None]
  - INFUSION RELATED REACTION [None]
  - PALPITATIONS [None]
  - PYREXIA [None]
  - TACHYCARDIA [None]
